FAERS Safety Report 4427044-8 (Version None)
Quarter: 2004Q3

REPORT INFORMATION
  Report Type: 
  Country: None (occurrence: None)
  Receive Date: 20040726
  Receipt Date: 20040426
  Transmission Date: 20050211
  Serious: No
  Sender: FDA-Public Use
  Company Number: US_990217991

PATIENT
  Age: 51 Year
  Sex: Female
  Weight: 63 kg

DRUGS (15)
  1. HUMALOG [Suspect]
     Indication: DIABETES MELLITUS
  2. HUMULIN U [Suspect]
     Indication: DIABETES MELLITUS
     Dosage: 5 U/2 DAY
  3. HUMULIN R [Suspect]
     Indication: DIABETES MELLITUS
  4. INSULIN BEEF/PORK REGULAR INSULIN (INSULIN ANIMAL) [Suspect]
     Indication: DIABETES MELLITUS
     Dates: end: 19981101
  5. INSULIN [Suspect]
     Indication: DIABETES MELLITUS
     Dates: end: 19981101
  6. PROZAC [Suspect]
     Indication: DEPRESSION
     Dosage: 40 MG 1 DAY
  7. PROZAC [Suspect]
     Indication: FIBROMYALGIA
     Dosage: 40 MG 1 DAY
  8. HUMULIN 50/50 [Suspect]
     Indication: DIABETES MELLITUS
     Dates: end: 20011113
  9. HUMULIN 50/50 [Suspect]
     Indication: DIABETES MELLITUS
  10. FORTEO [Suspect]
     Indication: OSTEOPOROSIS
     Dosage: 20 UG DAY
     Dates: start: 20040424
  11. MICRO K (POTASSIUM CHLORIDE) [Concomitant]
  12. PROPULSID [Concomitant]
  13. THYROID TAB [Concomitant]
  14. XANAX [Concomitant]
  15. ZANTAC [Concomitant]

REACTIONS (10)
  - CONFUSIONAL STATE [None]
  - FATIGUE [None]
  - FEELING ABNORMAL [None]
  - HYPOGLYCAEMIA UNAWARENESS [None]
  - INJECTION SITE SWELLING [None]
  - LETHARGY [None]
  - LOCALISED INFECTION [None]
  - MENTAL IMPAIRMENT [None]
  - PYREXIA [None]
  - WEIGHT INCREASED [None]
